FAERS Safety Report 23864694 (Version 3)
Quarter: 2024Q3

REPORT INFORMATION
  Report Type: Spontaneous
  Country: US (occurrence: US)
  Receive Date: 20240516
  Receipt Date: 20240710
  Transmission Date: 20241017
  Serious: No
  Sender: SANOFI AVENTIS
  Company Number: US-SA-SAC20240514001233

PATIENT
  Age: 15 Year
  Sex: Male

DRUGS (4)
  1. DUPIXENT [Suspect]
     Active Substance: DUPILUMAB
     Indication: Eosinophilic oesophagitis
     Dosage: 300 MG, QW
     Route: 058
     Dates: start: 20240130
  2. BUDESONIDE [Concomitant]
     Active Substance: BUDESONIDE
     Dosage: UNK
  3. DIAZEPAM [Concomitant]
     Active Substance: DIAZEPAM
     Dosage: UNK
  4. OMEPRAZOLE [Concomitant]
     Active Substance: OMEPRAZOLE
     Dosage: UNK

REACTIONS (5)
  - Impaired quality of life [Unknown]
  - Throat clearing [Unknown]
  - Cough [Unknown]
  - Injection site swelling [Recovered/Resolved]
  - Drug ineffective [Unknown]

NARRATIVE: CASE EVENT DATE: 20240101
